FAERS Safety Report 4278170-8 (Version None)
Quarter: 2004Q1

REPORT INFORMATION
  Report Type: 
  Country: None (occurrence: None)
  Receive Date: 20040121
  Receipt Date: 20040107
  Transmission Date: 20041129
  Serious: Yes (Hospitalization)
  Sender: FDA-Public Use
  Company Number: 2003-06251

PATIENT
  Age: 36 Year
  Sex: Female
  Weight: 40 kg

DRUGS (9)
  1. VIREAD [Suspect]
     Indication: HIV INFECTION
     Dosage: 300 MG QD PO
     Route: 048
     Dates: start: 20020912, end: 20030814
  2. DIDANOSINE [Suspect]
     Indication: HIV INFECTION
     Dosage: 200 MG QD PO
     Route: 048
     Dates: start: 20020912, end: 20030822
  3. KALETRA [Concomitant]
  4. COTRIM [Concomitant]
  5. FLUCONAZOLE [Concomitant]
  6. AMOXICILLIN [Concomitant]
  7. DOMPERIDONE [Concomitant]
  8. METOCLOPRAMIDE [Concomitant]
  9. LANSOPRAZOLE [Concomitant]

REACTIONS (12)
  - BLOOD BICARBONATE DECREASED [None]
  - BLOOD CREATININE INCREASED [None]
  - BLOOD TRIGLYCERIDES INCREASED [None]
  - HYPOPHOSPHATAEMIA [None]
  - LIPASE INCREASED [None]
  - MARKEDLY REDUCED DIETARY INTAKE [None]
  - NEPHROPATHY [None]
  - PANCREATITIS [None]
  - RENAL TUBULAR ACIDOSIS [None]
  - URINE ANALYSIS ABNORMAL [None]
  - VOMITING [None]
  - WEIGHT DECREASED [None]
